FAERS Safety Report 23230433 (Version 2)
Quarter: 2023Q4

REPORT INFORMATION
  Report Type: Spontaneous
  Country: BR (occurrence: BR)
  Receive Date: 20231127
  Receipt Date: 20231229
  Transmission Date: 20240110
  Serious: Yes (Other)
  Sender: FDA-Public Use
  Company Number: BR-002147023-NVSC2023BR008547

PATIENT
  Sex: Female

DRUGS (5)
  1. KISQALI [Suspect]
     Active Substance: RIBOCICLIB
     Dosage: UNK
     Route: 065
  2. KISQALI [Suspect]
     Active Substance: RIBOCICLIB
     Dosage: 3 DOSAGE FORM, Q8H (TABLETS)
     Route: 065
  3. KISQALI [Suspect]
     Active Substance: RIBOCICLIB
     Indication: Breast cancer
     Dosage: 600 MG, QD (PER DAY, MORNING, AFTERNOON, AND EVENING)
     Route: 048
  4. KISQALI [Suspect]
     Active Substance: RIBOCICLIB
     Dosage: 3, QD
     Route: 065
  5. OMEPRAZOLE [Suspect]
     Active Substance: OMEPRAZOLE
     Indication: Product used for unknown indication
     Dosage: UNK
     Route: 065

REACTIONS (18)
  - Metastasis [Unknown]
  - Skin discolouration [Unknown]
  - Foot deformity [Unknown]
  - Mass [Unknown]
  - Head injury [Unknown]
  - Bone pain [Unknown]
  - Contusion [Recovered/Resolved]
  - Breast mass [Recovering/Resolving]
  - Pelvic pain [Recovering/Resolving]
  - Breast pain [Recovering/Resolving]
  - Pain [Recovered/Resolved]
  - Abdominal pain [Unknown]
  - Insomnia [Unknown]
  - Liver disorder [Unknown]
  - Amenorrhoea [Unknown]
  - Skeletal injury [Unknown]
  - Inappropriate schedule of product administration [Recovered/Resolved]
  - Product distribution issue [Unknown]
